FAERS Safety Report 9748478 (Version 1)
Quarter: 2013Q4

REPORT INFORMATION
  Report Type: Spontaneous
  Country: US (occurrence: US)
  Receive Date: 20131212
  Receipt Date: 20131212
  Transmission Date: 20140711
  Serious: No
  Sender: FDA-Public Use
  Company Number: US-BAYER-2013-151807

PATIENT
  Age: 57 Year
  Sex: Female
  Weight: 82.54 kg

DRUGS (3)
  1. ALEVE GELCAPS [Suspect]
     Dosage: UNK UNK, PRN
     Route: 048
     Dates: start: 201311
  2. BENICAR [Concomitant]
  3. TOPROL [Concomitant]

REACTIONS (1)
  - Off label use [None]
